FAERS Safety Report 17545609 (Version 3)
Quarter: 2020Q1

REPORT INFORMATION
  Report Type: Report from Study
  Country: FR (occurrence: FR)
  Receive Date: 20200316
  Receipt Date: 20200320
  Transmission Date: 20200409
  Serious: Yes (Hospitalization)
  Sender: FDA-Public Use
  Company Number: FR-EISAI MEDICAL RESEARCH-EC-2020-071743

PATIENT
  Age: 74 Year
  Sex: Male
  Weight: 59 kg

DRUGS (11)
  1. DIGOXINE NATIVELLE [Concomitant]
     Active Substance: DIGOXIN
     Dates: start: 201004
  2. PEMBROLIZUMAB. [Suspect]
     Active Substance: PEMBROLIZUMAB
     Indication: HEPATOCELLULAR CARCINOMA
     Route: 041
     Dates: start: 20200305, end: 20200305
  3. ESCITALOPRAM [Concomitant]
     Active Substance: ESCITALOPRAM OXALATE
     Dates: start: 20180625
  4. TADENAN [Concomitant]
     Active Substance: PYGEUM
     Dates: start: 201801
  5. PANTOPRAZOLE [Concomitant]
     Active Substance: PANTOPRAZOLE
     Dates: start: 200401
  6. ROSUVASTATINE [Concomitant]
     Active Substance: ROSUVASTATIN
     Dates: start: 200401, end: 20200318
  7. PREGABALIN. [Concomitant]
     Active Substance: PREGABALIN
     Dates: start: 201001
  8. UVEDOSE [Concomitant]
     Active Substance: CHOLECALCIFEROL
     Dates: start: 201001
  9. LENVATINIB [Suspect]
     Active Substance: LENVATINIB
     Indication: HEPATOCELLULAR CARCINOMA
     Route: 048
     Dates: start: 20200305, end: 20200307
  10. IRBESARTAN. [Concomitant]
     Active Substance: IRBESARTAN
     Dates: start: 200401, end: 20200318
  11. INNOHEP [Concomitant]
     Active Substance: TINZAPARIN SODIUM
     Dates: start: 20040417

REACTIONS (1)
  - Lung disorder [Recovered/Resolved]

NARRATIVE: CASE EVENT DATE: 20200308
